FAERS Safety Report 15120268 (Version 1)
Quarter: 2018Q3

REPORT INFORMATION
  Report Type: Spontaneous
  Country: JP (occurrence: JP)
  Receive Date: 20180709
  Receipt Date: 20180709
  Transmission Date: 20181010
  Serious: Yes (Other)
  Sender: FDA-Public Use
  Company Number: JP-009507513-1806JPN001606J

PATIENT
  Age: 81 Year
  Sex: Female

DRUGS (4)
  1. PHENOTHRIN [Concomitant]
     Active Substance: PHENOTHRIN
     Indication: ACARODERMATITIS
     Dosage: 30 ML, UNKNOWN
     Route: 051
     Dates: start: 20180607, end: 20180607
  2. STROMECTOL [Suspect]
     Active Substance: IVERMECTIN
     Dosage: 9 MG, UNKNOWN
     Dates: start: 20180615, end: 20180615
  3. PHENOTHRIN [Concomitant]
     Active Substance: PHENOTHRIN
     Dosage: 30 ML, UNK
     Dates: start: 20180614, end: 20180614
  4. STROMECTOL [Suspect]
     Active Substance: IVERMECTIN
     Indication: ACARODERMATITIS
     Dosage: 9 MG, UNKNOWN
     Route: 048
     Dates: start: 20180607, end: 20180607

REACTIONS (1)
  - Clostridium difficile colitis [Recovered/Resolved]

NARRATIVE: CASE EVENT DATE: 20180614
